FAERS Safety Report 21451766 (Version 2)
Quarter: 2022Q4

REPORT INFORMATION
  Report Type: Report from Study
  Country: FR (occurrence: FR)
  Receive Date: 20221013
  Receipt Date: 20221223
  Transmission Date: 20230113
  Serious: Yes (Hospitalization, Other)
  Sender: FDA-Public Use
  Company Number: FR-ELI_LILLY_AND_COMPANY-FR202210004442

PATIENT
  Age: 40 Year
  Sex: Female
  Weight: 61 kg

DRUGS (2)
  1. RETEVMO [Suspect]
     Active Substance: SELPERCATINIB
     Indication: Medullary thyroid cancer
     Dosage: 160 MG, BID (160 MG IN MORNING AND 80 MG IN EVENING)
     Route: 065
     Dates: start: 20200818, end: 202201
  2. RETEVMO [Suspect]
     Active Substance: SELPERCATINIB
     Dosage: 160 MG, UNKNOWN
     Route: 065
     Dates: start: 20221022

REACTIONS (1)
  - Ascites [Not Recovered/Not Resolved]
